FAERS Safety Report 9849055 (Version 1)
Quarter: 2014Q1

REPORT INFORMATION
  Report Type: Spontaneous
  Country: GB (occurrence: None)
  Receive Date: 20140124
  Receipt Date: 20140124
  Transmission Date: 20141002
  Serious: Yes (Congenital Anomaly, Other)
  Sender: FDA-Public Use
  Company Number: AUR-APL-2014-00522

PATIENT
  Age: 1 Hour
  Sex: Male
  Weight: 3.25 kg

DRUGS (1)
  1. CITALOPRAM (CITALOPRAM) [Suspect]
     Indication: DEPRESSION
     Dosage: 1 IN 1 D
     Route: 064
     Dates: end: 20120905

REACTIONS (4)
  - Maternal drugs affecting foetus [None]
  - Limb malformation [None]
  - Syndactyly [None]
  - Adactyly [None]
